FAERS Safety Report 25182060 (Version 1)
Quarter: 2025Q2

REPORT INFORMATION
  Report Type: Spontaneous
  Country: US (occurrence: US)
  Receive Date: 20250410
  Receipt Date: 20250410
  Transmission Date: 20250716
  Serious: Yes (Other)
  Sender: TEVA
  Company Number: US-TEVA-VS-3317291

PATIENT
  Age: 66 Year
  Sex: Female

DRUGS (1)
  1. DIPYRIDAMOLE [Suspect]
     Active Substance: DIPYRIDAMOLE
     Indication: Cardiac disorder
     Route: 065

REACTIONS (2)
  - Angina pectoris [Recovered/Resolved]
  - Electrocardiogram ST segment depression [Recovered/Resolved]
